FAERS Safety Report 11253130 (Version 1)
Quarter: 2015Q3

REPORT INFORMATION
  Report Type: Spontaneous
  Country: BR (occurrence: BR)
  Receive Date: 20150709
  Receipt Date: 20150709
  Transmission Date: 20151125
  Serious: Yes (Other)
  Sender: FDA-Public Use
  Company Number: BR-ROCHE-1604986

PATIENT
  Age: 65 Year
  Sex: Male
  Weight: 84 kg

DRUGS (3)
  1. XELODA [Suspect]
     Active Substance: CAPECITABINE
     Indication: RECTAL CANCER
     Route: 048
     Dates: start: 2013
  2. VASCASE [Suspect]
     Active Substance: CILAZAPRIL ANHYDROUS
     Indication: HYPERTENSION
     Dosage: 1 TABLET AT NIGHT
     Route: 048
     Dates: start: 1981
  3. TENADREN [Concomitant]
     Active Substance: HYDROCHLOROTHIAZIDE\PROPRANOLOL HYDROCHLORIDE
     Indication: HYPERTENSION
     Dosage: 1 TABLET IN THE MORNING
     Route: 065

REACTIONS (4)
  - Blood cholesterol abnormal [Unknown]
  - Rectal cancer [Recovering/Resolving]
  - Blood pressure increased [Unknown]
  - Blood triglycerides abnormal [Unknown]

NARRATIVE: CASE EVENT DATE: 2013
